FAERS Safety Report 16158749 (Version 1)
Quarter: 2019Q2

REPORT INFORMATION
  Report Type: Spontaneous
  Country: FR (occurrence: FR)
  Receive Date: 20190404
  Receipt Date: 20190404
  Transmission Date: 20190711
  Serious: Yes (Death)
  Sender: FDA-Public Use
  Company Number: FR-TEVA-2019-FR-1031949

PATIENT
  Age: 79 Year
  Sex: Male

DRUGS (13)
  1. SINEMET [Suspect]
     Active Substance: CARBIDOPA\LEVODOPA
     Indication: PARKINSON^S DISEASE
     Dosage: 2 DOSAGE FORMS DAILY; 1CP MORNING AND 1CP NOON
     Route: 048
  2. DUTASTERIDE SANDOZ 0,5 MG, CAPSULE MOLLE [Suspect]
     Active Substance: DUTASTERIDE
     Indication: BENIGN PROSTATIC HYPERPLASIA
     Dosage: 1 DOSAGE FORMS DAILY;
     Route: 048
  3. LEVODOPA CARBIDOPA TEVA [Suspect]
     Active Substance: CARBIDOPA\LEVODOPA
     Indication: PARKINSON^S DISEASE
     Dosage: 1 DOSAGE FORMS DAILY; 1 CP AT BEDTIME
     Route: 048
     Dates: start: 20190125
  4. DOLIPRANE [Suspect]
     Active Substance: ACETAMINOPHEN
     Indication: PAIN
     Route: 048
  5. ESCITALOPRAM [Suspect]
     Active Substance: ESCITALOPRAM OXALATE
     Indication: DEPRESSION
     Dosage: 1 DOSAGE FORMS DAILY; 1 MORNING CP
     Route: 048
  6. MONOCRIXO [Suspect]
     Active Substance: TRAMADOL HYDROCHLORIDE
     Indication: PAIN
     Route: 048
  7. TRAMADOL PARACETAMOL MYLAN GENERIQUES [Suspect]
     Active Substance: ACETAMINOPHEN\TRAMADOL
     Indication: PAIN
     Route: 048
  8. CLOZAPINE MERCK 25 MG, COMPRIM? S?CABLE [Suspect]
     Active Substance: CLOZAPINE
     Indication: AGITATION
     Dosage: 1 DOSAGE FORMS DAILY; 1 CP IN THE EVENING
     Route: 048
  9. OXYNORMORO 5 MG, COMPRIM? ORODISPERSIBLE [Suspect]
     Active Substance: OXYCODONE HYDROCHLORIDE
     Indication: PAIN
     Dosage: 1 DOSAGE FORMS DAILY; IF PAIN
     Route: 048
     Dates: start: 20190204
  10. RIVASTIGMINE MYLAN PHARMA 9,5 MG/24 HEURES, DISPOSITIF TRANSDERMIQUE [Suspect]
     Active Substance: RIVASTIGMINE
     Indication: DEMENTIA
     Dosage: 1 DOSAGE FORMS DAILY;
     Route: 062
  11. ALPRAZOLAM MYLAN 0,25 MG, COMPRIM? S?CABLE [Suspect]
     Active Substance: ALPRAZOLAM
     Indication: ANXIETY
     Dosage: 1 DOSAGE FORMS DAILY;
     Route: 048
  12. MODOPAR [Suspect]
     Active Substance: BENSERAZIDE HYDROCHLORIDE\LEVODOPA
     Indication: PARKINSON^S DISEASE
     Dosage: 4 DOSAGE FORMS DAILY; 2CP AT 16H AND 2CP IN THE EVENING
     Route: 048
     Dates: start: 20190125, end: 20190205
  13. ACUPAN [Suspect]
     Active Substance: NEFOPAM HYDROCHLORIDE
     Indication: PAIN
     Dosage: 4 DOSAGE FORMS DAILY;
     Route: 060
     Dates: start: 20190204

REACTIONS (3)
  - Bedridden [Fatal]
  - Malaise [Fatal]
  - Pain [Fatal]
